FAERS Safety Report 5331816-5 (Version None)
Quarter: 2007Q2

REPORT INFORMATION
  Report Type: 
  Country: None (occurrence: None)
  Receive Date: 20070518
  Receipt Date: 20070515
  Transmission Date: 20071010
  Serious: Yes (Life-Threatening)
  Sender: FDA-Public Use
  Company Number: 2007-158375-NL

PATIENT
  Age: 70 Year
  Sex: Female

DRUGS (4)
  1. DEXAMETHASONE SODIUM PHOSPHATE [Suspect]
     Indication: LARYNGITIS
     Dosage: RESPIRATORY (INHALATION)
     Route: 055
     Dates: start: 20070507, end: 20070507
  2. LIDOCAINE [Concomitant]
  3. EPINEPHRINE HYDROCHLORIDE [Concomitant]
  4. LUGOL CAP [Concomitant]

REACTIONS (4)
  - APHONIA [None]
  - COUGH [None]
  - LARYNGEAL OEDEMA [None]
  - NASOPHARYNGEAL DISORDER [None]
